FAERS Safety Report 5410043-7 (Version None)
Quarter: 2007Q3

REPORT INFORMATION
  Report Type: 
  Country: None (occurrence: None)
  Receive Date: 20070713
  Receipt Date: 20070605
  Transmission Date: 20080115
  Serious: No
  Sender: FDA-Public Use
  Company Number: 2007SP002119

PATIENT
  Age: 81 Year
  Sex: Male
  Weight: 88.4514 kg

DRUGS (2)
  1. LUNESTA [Suspect]
     Indication: INSOMNIA
     Dosage: 3 MG; PRN; ORAL; 3 MG; 1X; ORAL
     Route: 048
     Dates: start: 20070601, end: 20070601
  2. LUNESTA [Suspect]
     Indication: INSOMNIA
     Dosage: 3 MG; PRN; ORAL; 3 MG; 1X; ORAL
     Route: 048
     Dates: start: 20070601, end: 20070601

REACTIONS (2)
  - DRUG INEFFECTIVE [None]
  - MIDDLE INSOMNIA [None]
